FAERS Safety Report 10218273 (Version 2)
Quarter: 2014Q2

REPORT INFORMATION
  Report Type: Report from Study
  Country: JP (occurrence: JP)
  Receive Date: 20140605
  Receipt Date: 20140616
  Transmission Date: 20141212
  Serious: Yes (Hospitalization)
  Sender: FDA-Public Use
  Company Number: JP-ROCHE-1412479

PATIENT
  Age: 66 Year
  Sex: 0
  Weight: 42 kg

DRUGS (6)
  1. BEVACIZUMAB [Suspect]
     Indication: COLON CANCER
     Route: 041
     Dates: start: 20140521, end: 20140521
  2. IRINOTECAN HYDROCHLORIDE [Concomitant]
     Indication: COLON CANCER
     Dosage: DRUG REPORTED AS: IRINOTECAN HYDROCHLORIDE HYDRATE
     Route: 041
     Dates: start: 20140521, end: 20140521
  3. 5-FU [Concomitant]
     Indication: COLON CANCER
     Route: 041
     Dates: start: 20140521, end: 20140521
  4. LEVOFOLINATE [Concomitant]
     Indication: COLON CANCER
     Dosage: DOSAGE IS UNCERTAIN.?REPORTED AS : LEVOFOLINATE CALCIUM
     Route: 041
  5. CALONAL [Concomitant]
     Route: 065
     Dates: start: 20140520
  6. LOXONIN [Concomitant]
     Route: 065
     Dates: start: 20140524

REACTIONS (1)
  - Pneumothorax [Recovered/Resolved]
